FAERS Safety Report 9441108 (Version 1)
Quarter: 2013Q3

REPORT INFORMATION
  Report Type: Spontaneous
  Country: US (occurrence: US)
  Receive Date: 20130805
  Receipt Date: 20130805
  Transmission Date: 20140515
  Serious: Yes (Other)
  Sender: FDA-Public Use
  Company Number: US-TEVA-422397USA

PATIENT
  Age: 29 Year
  Sex: Female
  Weight: 45.4 kg

DRUGS (2)
  1. PARAGARD 380A [Suspect]
     Indication: CONTRACEPTION
     Route: 015
  2. NASONEX [Concomitant]
     Indication: HYPERSENSITIVITY

REACTIONS (2)
  - Embedded device [Not Recovered/Not Resolved]
  - Medical device complication [Not Recovered/Not Resolved]
